FAERS Safety Report 7232550-7 (Version None)
Quarter: 2011Q1

REPORT INFORMATION
  Report Type: 
  Country: None (occurrence: None)
  Receive Date: 20110106
  Receipt Date: 20101123
  Transmission Date: 20110831
  Serious: Yes (Hospitalization, Other)
  Sender: FDA-Public Use
  Company Number: 2008BH004256

PATIENT
  Age: 31 Year
  Sex: Female
  Weight: 87.9978 kg

DRUGS (39)
  1. HEPARIN SODIUM 5,000 UNITS IN DEXTROSE 5% [Suspect]
     Indication: PRODUCT USED FOR UNKNOWN INDICATION
     Dosage: IV
     Route: 042
     Dates: start: 20080125, end: 20080128
  2. REGLAN [Concomitant]
  3. VALIUM [Concomitant]
  4. HEPARIN SODIUM 1,000 UNITS AND SODIUM CHLORIDE 0.9% [Suspect]
     Indication: PRODUCT USED FOR UNKNOWN INDICATION
     Dosage: IV
     Route: 042
     Dates: start: 20071210, end: 20080301
  5. VITAMIN B-12 [Concomitant]
  6. DIHYDROERGOTAMINE MESYLATE [Concomitant]
  7. AMBIEN [Concomitant]
  8. PHENERGAN HCL [Concomitant]
  9. METOPROLOL TARTRATE [Concomitant]
  10. WARFARIN SODIUM [Concomitant]
  11. OXYCONTIN [Concomitant]
  12. HEPARIN SODIUM [Suspect]
     Indication: ANGIOPLASTY
     Dosage: ONCE; IV EVERY 8 HR; IV 5000 UNITS; EVERY 8 HR; SC
     Route: 042
     Dates: start: 20070210, end: 20070210
  13. HEPARIN SODIUM [Suspect]
     Indication: INTRAVENOUS CATHETER MANAGEMENT
     Dosage: ONCE; IV EVERY 8 HR; IV 5000 UNITS; EVERY 8 HR; SC
     Route: 042
     Dates: start: 20070210, end: 20070210
  14. HEPARIN SODIUM [Suspect]
     Indication: ANGIOPLASTY
     Dosage: ONCE; IV EVERY 8 HR; IV 5000 UNITS; EVERY 8 HR; SC
     Route: 042
     Dates: start: 20070420, end: 20070420
  15. HEPARIN SODIUM [Suspect]
     Indication: INTRAVENOUS CATHETER MANAGEMENT
     Dosage: ONCE; IV EVERY 8 HR; IV 5000 UNITS; EVERY 8 HR; SC
     Route: 042
     Dates: start: 20070420, end: 20070420
  16. HEPARIN SODIUM [Suspect]
     Indication: ANGIOPLASTY
     Dosage: ONCE; IV EVERY 8 HR; IV 5000 UNITS; EVERY 8 HR; SC
     Route: 042
     Dates: start: 20071027, end: 20071027
  17. HEPARIN SODIUM [Suspect]
     Indication: INTRAVENOUS CATHETER MANAGEMENT
     Dosage: ONCE; IV EVERY 8 HR; IV 5000 UNITS; EVERY 8 HR; SC
     Route: 042
     Dates: start: 20071027, end: 20071027
  18. HEPARIN SODIUM [Suspect]
     Indication: ANGIOPLASTY
     Dosage: ONCE; IV EVERY 8 HR; IV 5000 UNITS; EVERY 8 HR; SC
     Route: 042
     Dates: start: 20080101, end: 20080101
  19. HEPARIN SODIUM [Suspect]
     Indication: INTRAVENOUS CATHETER MANAGEMENT
     Dosage: ONCE; IV EVERY 8 HR; IV 5000 UNITS; EVERY 8 HR; SC
     Route: 042
     Dates: start: 20080101, end: 20080101
  20. HEPARIN SODIUM [Suspect]
     Indication: ANGIOPLASTY
     Dosage: ONCE; IV EVERY 8 HR; IV 5000 UNITS; EVERY 8 HR; SC
     Route: 042
     Dates: start: 20080228, end: 20080228
  21. HEPARIN SODIUM [Suspect]
     Indication: INTRAVENOUS CATHETER MANAGEMENT
     Dosage: ONCE; IV EVERY 8 HR; IV 5000 UNITS; EVERY 8 HR; SC
     Route: 042
     Dates: start: 20080228, end: 20080228
  22. HEPARIN SODIUM [Suspect]
     Indication: ANGIOPLASTY
     Dosage: ONCE; IV EVERY 8 HR; IV 5000 UNITS; EVERY 8 HR; SC
     Route: 042
     Dates: start: 20070421, end: 20070421
  23. HEPARIN SODIUM [Suspect]
     Indication: INTRAVENOUS CATHETER MANAGEMENT
     Dosage: ONCE; IV EVERY 8 HR; IV 5000 UNITS; EVERY 8 HR; SC
     Route: 042
     Dates: start: 20070421, end: 20070421
  24. HEPARIN SODIUM [Suspect]
     Indication: ANGIOPLASTY
     Dosage: ONCE; IV EVERY 8 HR; IV 5000 UNITS; EVERY 8 HR; SC
     Route: 042
     Dates: start: 20070209, end: 20070209
  25. HEPARIN SODIUM [Suspect]
     Indication: INTRAVENOUS CATHETER MANAGEMENT
     Dosage: ONCE; IV EVERY 8 HR; IV 5000 UNITS; EVERY 8 HR; SC
     Route: 042
     Dates: start: 20070209, end: 20070209
  26. HEPARIN SODIUM [Suspect]
     Indication: ANGIOPLASTY
     Dosage: ONCE; IV EVERY 8 HR; IV 5000 UNITS; EVERY 8 HR; SC
     Route: 042
     Dates: start: 20060901, end: 20080301
  27. HEPARIN SODIUM [Suspect]
     Indication: INTRAVENOUS CATHETER MANAGEMENT
     Dosage: ONCE; IV EVERY 8 HR; IV 5000 UNITS; EVERY 8 HR; SC
     Route: 042
     Dates: start: 20060901, end: 20080301
  28. HEPARIN SODIUM [Suspect]
     Indication: ANGIOPLASTY
     Dosage: ONCE; IV EVERY 8 HR; IV 5000 UNITS; EVERY 8 HR; SC
     Route: 042
     Dates: start: 20070912, end: 20070912
  29. HEPARIN SODIUM [Suspect]
     Indication: INTRAVENOUS CATHETER MANAGEMENT
     Dosage: ONCE; IV EVERY 8 HR; IV 5000 UNITS; EVERY 8 HR; SC
     Route: 042
     Dates: start: 20070912, end: 20070912
  30. HEPARIN SODIUM [Suspect]
     Indication: ANGIOPLASTY
     Dosage: ONCE; IV EVERY 8 HR; IV 5000 UNITS; EVERY 8 HR; SC
     Route: 042
     Dates: start: 20070801, end: 20070807
  31. HEPARIN SODIUM [Suspect]
     Indication: INTRAVENOUS CATHETER MANAGEMENT
     Dosage: ONCE; IV EVERY 8 HR; IV 5000 UNITS; EVERY 8 HR; SC
     Route: 042
     Dates: start: 20070801, end: 20070807
  32. HEPARIN SODIUM [Suspect]
     Indication: ANGIOPLASTY
     Dosage: ONCE; IV EVERY 8 HR; IV 5000 UNITS; EVERY 8 HR; SC
     Route: 042
     Dates: start: 20080713, end: 20080714
  33. HEPARIN SODIUM [Suspect]
     Indication: INTRAVENOUS CATHETER MANAGEMENT
     Dosage: ONCE; IV EVERY 8 HR; IV 5000 UNITS; EVERY 8 HR; SC
     Route: 042
     Dates: start: 20080713, end: 20080714
  34. LORTAB [Concomitant]
  35. MULTI-VITAMINS [Concomitant]
  36. LOVENOX [Concomitant]
  37. HYDROCODONE [Concomitant]
  38. SOMA [Concomitant]
  39. STADOL [Concomitant]

REACTIONS (47)
  - SUPERIOR VENA CAVA SYNDROME [None]
  - BREAST MASS [None]
  - BACK PAIN [None]
  - HAEMATEMESIS [None]
  - EPISTAXIS [None]
  - ADHESION [None]
  - SWELLING FACE [None]
  - WOUND DEHISCENCE [None]
  - JOINT DISLOCATION [None]
  - STAPHYLOCOCCAL INFECTION [None]
  - INJECTION SITE RASH [None]
  - MIGRAINE [None]
  - SWELLING [None]
  - ROAD TRAFFIC ACCIDENT [None]
  - ACUTE MYOCARDIAL INFARCTION [None]
  - THROMBOSIS [None]
  - SUPERIOR VENA CAVAL STENOSIS [None]
  - VENA CAVA THROMBOSIS [None]
  - DEEP VEIN THROMBOSIS [None]
  - VISUAL ACUITY REDUCED TRANSIENTLY [None]
  - RED BLOOD CELL SEDIMENTATION RATE INCREASED [None]
  - PULMONARY CONGESTION [None]
  - HYPERCOAGULATION [None]
  - HYPOTENSION [None]
  - BLOOD COUNT ABNORMAL [None]
  - FLUSHING [None]
  - DYSGEUSIA [None]
  - INFUSION SITE INFECTION [None]
  - MALAISE [None]
  - RECTAL HAEMORRHAGE [None]
  - CATHETER SITE INFLAMMATION [None]
  - EMBOLISM ARTERIAL [None]
  - HAEMOGLOBIN DECREASED [None]
  - INTERNATIONAL NORMALISED RATIO INCREASED [None]
  - SEPSIS [None]
  - CELLULITIS [None]
  - PALPITATIONS [None]
  - THROMBOSIS IN DEVICE [None]
  - TINNITUS [None]
  - ANTINUCLEAR ANTIBODY POSITIVE [None]
  - CATHETER SITE HAEMORRHAGE [None]
  - CHEST PAIN [None]
  - PAIN [None]
  - RASH [None]
  - PRODUCT QUALITY ISSUE [None]
  - DIZZINESS [None]
  - HEADACHE [None]
